FAERS Safety Report 14872113 (Version 3)
Quarter: 2018Q4

REPORT INFORMATION
  Report Type: Spontaneous
  Country: US (occurrence: US)
  Receive Date: 20180509
  Receipt Date: 20181205
  Transmission Date: 20190204
  Serious: Yes (Hospitalization)
  Sender: FDA-Public Use
  Company Number: US-OTSUKA-2018_010830

PATIENT
  Age: 41 Year
  Sex: Male

DRUGS (5)
  1. ARIPIPRAZOLE. [Concomitant]
     Active Substance: ARIPIPRAZOLE
     Indication: PRODUCT USED FOR UNKNOWN INDICATION
     Dosage: UNK
     Route: 065
     Dates: start: 20150521, end: 20161229
  2. ABILIFY [Suspect]
     Active Substance: ARIPIPRAZOLE
     Indication: ANXIETY
     Dosage: 15 MG, QD
     Route: 065
     Dates: start: 2002, end: 201504
  3. ABILIFY [Suspect]
     Active Substance: ARIPIPRAZOLE
     Indication: INSOMNIA
  4. ABILIFY [Suspect]
     Active Substance: ARIPIPRAZOLE
     Indication: DEPRESSION
  5. ABILIFY [Suspect]
     Active Substance: ARIPIPRAZOLE
     Indication: EATING DISORDER

REACTIONS (14)
  - Compulsive sexual behaviour [Recovered/Resolved]
  - Pain [Unknown]
  - Condition aggravated [Recovered/Resolved]
  - Anxiety [Unknown]
  - Compulsive shopping [Recovered/Resolved]
  - Obsessive-compulsive disorder [Unknown]
  - Injury [Unknown]
  - Bankruptcy [Unknown]
  - Loss of employment [Unknown]
  - Mental disorder [Unknown]
  - Product use in unapproved indication [Unknown]
  - Economic problem [Unknown]
  - Loss of personal independence in daily activities [Unknown]
  - Gambling disorder [Recovered/Resolved]

NARRATIVE: CASE EVENT DATE: 2002
